FAERS Safety Report 16823242 (Version 1)
Quarter: 2019Q3

REPORT INFORMATION
  Report Type: Spontaneous
  Country: US (occurrence: US)
  Receive Date: 20190918
  Receipt Date: 20190918
  Transmission Date: 20191005
  Serious: Yes (Hospitalization, Other)
  Sender: FDA-Public Use
  Company Number: US-HIKMA PHARMACEUTICALS USA INC.-US-H14001-19-46963

PATIENT
  Age: 59 Year
  Sex: Female

DRUGS (1)
  1. CEFAZOLIN [Suspect]
     Active Substance: CEFAZOLIN
     Indication: STAPHYLOCOCCAL INFECTION
     Dosage: ()
     Route: 065

REACTIONS (3)
  - Glomerulonephritis [Recovering/Resolving]
  - Staphylococcal bacteraemia [Recovering/Resolving]
  - Hypersensitivity vasculitis [Recovering/Resolving]
